FAERS Safety Report 22217605 (Version 1)
Quarter: 2023Q2

REPORT INFORMATION
  Report Type: Spontaneous
  Country: GB (occurrence: GB)
  Receive Date: 20230417
  Receipt Date: 20230417
  Transmission Date: 20230721
  Serious: Yes (Other)
  Sender: FDA-Public Use
  Company Number: GB-MHRA-MED-202304070806045890-SWKGR

PATIENT
  Age: 21 Year
  Sex: Male

DRUGS (1)
  1. AMOXICILLIN [Suspect]
     Active Substance: AMOXICILLIN
     Indication: Product used for unknown indication
     Dosage: UNK
     Route: 065
     Dates: start: 20230327, end: 20230403

REACTIONS (3)
  - Rash [Recovering/Resolving]
  - Oropharyngeal blistering [Not Recovered/Not Resolved]
  - Tongue eruption [Not Recovered/Not Resolved]

NARRATIVE: CASE EVENT DATE: 20230101
